FAERS Safety Report 13472005 (Version 1)
Quarter: 2017Q2

REPORT INFORMATION
  Report Type: Spontaneous
  Country: US (occurrence: US)
  Receive Date: 20170424
  Receipt Date: 20170424
  Transmission Date: 20170830
  Serious: Yes (Other)
  Sender: FDA-Public Use
  Company Number: US-AUROBINDO-AUR-APL-2017-32870

PATIENT
  Age: 59 Year
  Sex: Female

DRUGS (1)
  1. PREDNISONE. [Suspect]
     Active Substance: PREDNISONE
     Indication: DERMATOMYOSITIS
     Dosage: 30 MG, DAILY
     Route: 065

REACTIONS (3)
  - Oral tuberculosis [Recovered/Resolved]
  - Tongue ulceration [Recovered/Resolved]
  - Oral disorder [Recovered/Resolved]
